FAERS Safety Report 8513384-X (Version None)
Quarter: 2012Q3

REPORT INFORMATION
  Report Type: 
  Country: None (occurrence: None)
  Receive Date: 20120717
  Receipt Date: 20120711
  Transmission Date: 20120928
  Serious: Yes (Other)
  Sender: FDA-Public Use
  Company Number: US-AMGEN-USASP2012043092

PATIENT
  Age: 68 Year
  Sex: Female

DRUGS (4)
  1. PROLIA [Suspect]
     Indication: OSTEOPOROSIS POSTMENOPAUSAL
     Dosage: 60 MG, Q6MO
     Dates: start: 20110601
  2. NASONEX [Concomitant]
  3. MULTIVITAMIN                       /00097801/ [Concomitant]
  4. ZYRTEC [Concomitant]

REACTIONS (3)
  - STRESS FRACTURE [None]
  - LACERATION [None]
  - BLOOD PRESSURE SYSTOLIC INCREASED [None]
